FAERS Safety Report 11467261 (Version 2)
Quarter: 2015Q3

REPORT INFORMATION
  Report Type: Report from Study
  Country: US (occurrence: US)
  Receive Date: 20150908
  Receipt Date: 20150911
  Transmission Date: 20151125
  Serious: No
  Sender: FDA-Public Use
  Company Number: US-ASTRAZENECA-2015SE76566

PATIENT
  Age: 27181 Day
  Sex: Female

DRUGS (1)
  1. BRILINTA [Suspect]
     Active Substance: TICAGRELOR
     Indication: ACUTE CORONARY SYNDROME
     Route: 048
     Dates: start: 20150108

REACTIONS (5)
  - Contusion [Unknown]
  - Headache [Unknown]
  - Dry mouth [Unknown]
  - Skin atrophy [Unknown]
  - Hyperhidrosis [Unknown]

NARRATIVE: CASE EVENT DATE: 20150801
